FAERS Safety Report 9620292 (Version 2)
Quarter: 2013Q4

REPORT INFORMATION
  Report Type: Spontaneous
  Country: US (occurrence: US)
  Receive Date: 20131014
  Receipt Date: 20131014
  Transmission Date: 20140711
  Serious: No
  Sender: FDA-Public Use
  Company Number: US-ALLERGAN-1302060US

PATIENT
  Age: 84 Year
  Sex: Female

DRUGS (10)
  1. ALPHAGAN P [Suspect]
     Indication: GLAUCOMA
     Dosage: 2 GTT, BID
  2. MEDICATIONS NOS [Concomitant]
     Indication: PRODUCT USED FOR UNKNOWN INDICATION
  3. TRAVATAN [Concomitant]
     Indication: GLAUCOMA
     Dosage: 2 GTT, UNK
     Route: 047
  4. ZOCOR [Concomitant]
     Indication: BLOOD CHOLESTEROL INCREASED
  5. ALLOPURINAL [Concomitant]
     Indication: GOUT
  6. WARFARIN [Concomitant]
     Indication: HEART RATE IRREGULAR
     Dosage: 5 MG, UNK
  7. DIGOXIN [Concomitant]
     Indication: HEART RATE IRREGULAR
  8. FOLIC ACID [Concomitant]
     Indication: SUPPLEMENTATION THERAPY
     Dosage: UNK UNK, QD
     Route: 048
  9. FAMOTIDINE [Concomitant]
     Indication: GASTROOESOPHAGEAL REFLUX DISEASE
     Dosage: UNK UNK, QD
  10. LEVOTHYROXINE [Concomitant]
     Indication: HYPOTHYROIDISM
     Dosage: 50 UNK, UNK
     Route: 048

REACTIONS (2)
  - Hallucination, visual [Not Recovered/Not Resolved]
  - Inappropriate schedule of drug administration [Unknown]
